FAERS Safety Report 5988249-8 (Version None)
Quarter: 2008Q4

REPORT INFORMATION
  Report Type: 
  Country: None (occurrence: None)
  Receive Date: 20081210
  Receipt Date: 20081203
  Transmission Date: 20090506
  Serious: Yes (Hospitalization, Other)
  Sender: FDA-Public Use
  Company Number: FR-JNJFOC-20080603260

PATIENT
  Sex: Female

DRUGS (7)
  1. RISPERDAL [Suspect]
     Route: 048
  2. RISPERDAL [Suspect]
     Indication: SCHIZOPHRENIA
     Route: 048
  3. TERCIAN [Suspect]
     Indication: AGITATION
     Dosage: 50 DROPS IN THE MORNING AND AT MIDDAY.  100 DROPS IN THE EVENING
     Route: 048
     Dates: start: 20080530, end: 20080603
  4. LOXAPINE HCL [Suspect]
     Indication: SCHIZOPHRENIA
     Route: 048
  5. RIVOTRIL [Concomitant]
     Indication: AGITATION
     Route: 048
  6. SULFARLEM [Concomitant]
     Indication: DRY MOUTH
     Route: 048
  7. HEPTAMYL [Concomitant]
     Indication: ORTHOSTATIC HYPOTENSION
     Route: 048

REACTIONS (1)
  - COLITIS ISCHAEMIC [None]
